FAERS Safety Report 5764963-4 (Version None)
Quarter: 2008Q2

REPORT INFORMATION
  Report Type: 
  Country: None (occurrence: None)
  Receive Date: 20080611
  Receipt Date: 20080604
  Transmission Date: 20081010
  Serious: Yes (Other)
  Sender: FDA-Public Use
  Company Number: B0524145A

PATIENT
  Age: 43 Year
  Sex: Male

DRUGS (1)
  1. SERETIDE ACCUHALER [Suspect]
     Indication: ASTHMA
     Dosage: 2PUFF TWICE PER DAY
     Route: 055
     Dates: start: 20070101

REACTIONS (3)
  - ASTHMA [None]
  - DRUG INEFFECTIVE [None]
  - DYSGEUSIA [None]
